FAERS Safety Report 9847153 (Version 2)
Quarter: 2014Q1

REPORT INFORMATION
  Report Type: Report from Study
  Country: DE (occurrence: JP)
  Receive Date: 20140127
  Receipt Date: 20140211
  Transmission Date: 20141002
  Serious: Yes (Disabling)
  Sender: FDA-Public Use
  Company Number: JP-FRI-1000052977

PATIENT
  Sex: Male

DRUGS (24)
  1. MEMANTINE [Suspect]
     Indication: DEMENTIA ALZHEIMER^S TYPE
     Dosage: 5 MG
     Route: 048
     Dates: start: 20120914, end: 20120921
  2. MEMANTINE [Suspect]
     Dosage: 10 MG
     Route: 048
     Dates: start: 20120922, end: 20120928
  3. MEMANTINE [Suspect]
     Dosage: 15 MG
     Route: 048
     Dates: start: 20120929, end: 20121005
  4. MEMANTINE [Suspect]
     Dosage: 20 MG
     Route: 048
     Dates: start: 20121006, end: 20121222
  5. SEROQUEL [Suspect]
     Indication: BEHAVIOURAL AND PSYCHIATRIC SYMPTOMS OF DEMENTIA
     Dosage: 50 MG
     Route: 048
     Dates: start: 20121006, end: 20121008
  6. SEROQUEL [Suspect]
     Dosage: 150 MG
     Route: 048
     Dates: start: 20121009, end: 20121012
  7. SEROQUEL [Suspect]
     Dosage: 200 MG
     Route: 048
     Dates: start: 20121013, end: 20121126
  8. SEROQUEL [Suspect]
     Dosage: 150 MG
     Route: 048
     Dates: start: 20121127, end: 20121209
  9. SEROQUEL [Suspect]
     Dosage: 100 MG
     Route: 048
     Dates: start: 20121210, end: 20121223
  10. ABILIFY [Suspect]
     Indication: BEHAVIOURAL AND PSYCHIATRIC SYMPTOMS OF DEMENTIA
     Dosage: 12 ML
     Route: 048
     Dates: start: 20121016, end: 20121019
  11. ABILIFY [Suspect]
     Dosage: 18 ML
     Route: 048
     Dates: start: 20121020, end: 20121105
  12. ABILIFY [Suspect]
     Dosage: 24 ML
     Route: 048
     Dates: start: 20121106, end: 20121126
  13. ABILIFY [Suspect]
     Dosage: 18 ML
     Route: 048
     Dates: start: 20121127, end: 20121203
  14. ABILIFY [Suspect]
     Dosage: 12 ML
     Route: 048
     Dates: start: 20121204, end: 20121204
  15. ABILIFY [Suspect]
     Dosage: 24 ML
     Route: 048
     Dates: start: 20121205, end: 20121209
  16. ABILIFY [Suspect]
     Dosage: 12 ML
     Route: 048
     Dates: start: 20121215, end: 20121223
  17. ARICEPT [Concomitant]
     Indication: DEMENTIA ALZHEIMER^S TYPE
     Route: 048
     Dates: start: 20120825, end: 20120905
  18. ROZEREM [Concomitant]
     Indication: BEHAVIOURAL AND PSYCHIATRIC SYMPTOMS OF DEMENTIA
     Route: 048
     Dates: start: 20120922, end: 20121005
  19. LUNESTA [Concomitant]
     Indication: BEHAVIOURAL AND PSYCHIATRIC SYMPTOMS OF DEMENTIA
     Route: 048
     Dates: start: 20120926, end: 20121210
  20. SODIUM VALPROATE SR [Concomitant]
     Indication: BEHAVIOURAL AND PSYCHIATRIC SYMPTOMS OF DEMENTIA
     Dosage: 400 MG
     Route: 048
     Dates: start: 20121009, end: 20121019
  21. ALOSENN [Concomitant]
     Route: 048
     Dates: start: 20120922, end: 20121223
  22. TAMSULOSIN HYDROCHLORIDE [Concomitant]
     Dosage: 0.2 MG
     Route: 048
     Dates: start: 20120922, end: 20121223
  23. BAYASPIRIN [Concomitant]
     Route: 048
     Dates: start: 20120922, end: 20121223
  24. OLMETEC [Concomitant]
     Route: 048
     Dates: start: 20120922, end: 20121223

REACTIONS (1)
  - Pneumonia [Recovered/Resolved with Sequelae]
